FAERS Safety Report 8456379-7 (Version None)
Quarter: 2012Q2

REPORT INFORMATION
  Report Type: 
  Country: None (occurrence: None)
  Receive Date: 20120621
  Receipt Date: 20120614
  Transmission Date: 20120825
  Serious: Yes (Hospitalization)
  Sender: FDA-Public Use
  Company Number: TW-GLAXOSMITHKLINE-B0809221A

PATIENT
  Sex: Male
  Weight: 95 kg

DRUGS (1)
  1. ROSIGLITAZONE MALEATE AND METFORMIN HCL [Suspect]
     Indication: TYPE 2 DIABETES MELLITUS
     Route: 065

REACTIONS (7)
  - CEREBRAL INFARCTION [None]
  - ISCHAEMIC STROKE [None]
  - HYPOAESTHESIA [None]
  - GAIT DISTURBANCE [None]
  - PALPITATIONS [None]
  - MUSCULAR WEAKNESS [None]
  - ASTHENIA [None]
